FAERS Safety Report 6147078-5 (Version None)
Quarter: 2009Q2

REPORT INFORMATION
  Report Type: 
  Country: None (occurrence: None)
  Receive Date: 20090407
  Receipt Date: 20090401
  Transmission Date: 20091009
  Serious: Yes (Hospitalization, Disabling)
  Sender: FDA-Public Use
  Company Number: US-MERCK-0904USA00123

PATIENT
  Age: 73 Year
  Sex: Female
  Weight: 70 kg

DRUGS (14)
  1. JANUVIA [Suspect]
     Indication: TYPE 2 DIABETES MELLITUS
     Route: 048
     Dates: start: 20090223, end: 20090311
  2. GLUCOVANCE [Concomitant]
     Indication: TYPE 2 DIABETES MELLITUS
     Route: 048
     Dates: start: 20010101
  3. ACTOS [Concomitant]
     Indication: TYPE 2 DIABETES MELLITUS
     Route: 048
     Dates: start: 20050101
  4. DIOVAN HCT [Concomitant]
     Indication: HYPERTENSION
     Route: 048
     Dates: start: 20020101
  5. NORVASC [Concomitant]
     Indication: HYPERTENSION
     Route: 048
     Dates: start: 20020101
  6. K-DUR [Concomitant]
     Indication: HYPERTENSION
     Route: 048
     Dates: start: 20020101
  7. LIPITOR [Concomitant]
     Indication: HYPERCHOLESTEROLAEMIA
     Route: 048
     Dates: start: 20050101
  8. ARICEPT [Concomitant]
     Indication: DEMENTIA
     Route: 048
     Dates: start: 20060101
  9. NAMENDA [Concomitant]
     Indication: DEMENTIA
     Route: 048
     Dates: start: 20070101
  10. PROTONIX [Concomitant]
     Indication: GASTROOESOPHAGEAL REFLUX DISEASE
     Route: 048
     Dates: start: 20090101
  11. PROTONIX [Concomitant]
     Indication: GASTRITIS
     Route: 048
     Dates: start: 20090101
  12. NASCOBAL [Concomitant]
     Indication: VITAMIN B COMPLEX DEFICIENCY
     Route: 065
     Dates: start: 20090101
  13. REGLAN [Concomitant]
     Indication: GASTRITIS
     Route: 048
     Dates: start: 20090101
  14. PULMICORT-100 [Concomitant]
     Indication: ASTHMA
     Route: 065

REACTIONS (3)
  - BLOOD AMYLASE INCREASED [None]
  - GASTRITIS [None]
  - VOMITING [None]
